FAERS Safety Report 4763797-7 (Version None)
Quarter: 2005Q3

REPORT INFORMATION
  Report Type: 
  Country: None (occurrence: None)
  Receive Date: 20050901
  Receipt Date: 20050729
  Transmission Date: 20060218
  Serious: Yes (Hospitalization)
  Sender: FDA-Public Use
  Company Number: 05P-163-0306200-00

PATIENT
  Age: 32 Year
  Sex: Female
  Weight: 61.2356 kg

DRUGS (4)
  1. DEPAKOTE ER [Suspect]
     Indication: CONVULSION
     Dosage: 500 MG, 2 TABLETS 2 IN 1 DAY, PER ORAL;  500 MG, 1 IN 1 D, PER ORAL
     Route: 048
     Dates: start: 20010101, end: 20050630
  2. DEPAKOTE ER [Suspect]
     Indication: CONVULSION
     Dosage: 500 MG, 2 TABLETS 2 IN 1 DAY, PER ORAL;  500 MG, 1 IN 1 D, PER ORAL
     Route: 048
     Dates: start: 20050630
  3. KEPPRA [Concomitant]
  4. TOPIRAMATE [Concomitant]

REACTIONS (3)
  - AMMONIA INCREASED [None]
  - DENTAL CARIES [None]
  - HEPATIC ENCEPHALOPATHY [None]
